FAERS Safety Report 10211756 (Version 2)
Quarter: 2014Q2

REPORT INFORMATION
  Report Type: Report from Study
  Country: US (occurrence: US)
  Receive Date: 20140602
  Receipt Date: 20140603
  Transmission Date: 20141212
  Serious: Yes (Other)
  Sender: FDA-Public Use
  Company Number: US-ABBVIE-14P-163-1241070-00

PATIENT
  Age: 65 Year
  Sex: Male
  Weight: 111.23 kg

DRUGS (6)
  1. HUMIRA [Suspect]
     Indication: RHEUMATOID ARTHRITIS
     Dates: start: 2004, end: 2012
  2. PREDNISONE [Concomitant]
     Indication: RHEUMATOID ARTHRITIS
  3. CELEBREX [Concomitant]
     Indication: RHEUMATOID ARTHRITIS
  4. METHOTREXATE [Concomitant]
     Indication: RHEUMATOID ARTHRITIS
  5. THYROID MEDICATION [Concomitant]
     Indication: HYPOTHYROIDISM
  6. ASPIRIN [Concomitant]
     Indication: PRODUCT USED FOR UNKNOWN INDICATION

REACTIONS (17)
  - Peripheral swelling [Recovered/Resolved]
  - Subclavian vein thrombosis [Not Recovered/Not Resolved]
  - Paraesthesia [Recovered/Resolved]
  - Skin discolouration [Recovered/Resolved]
  - Intervertebral disc disorder [Recovered/Resolved]
  - Sciatica [Recovered/Resolved]
  - Arthralgia [Not Recovered/Not Resolved]
  - Myalgia [Not Recovered/Not Resolved]
  - Pulse abnormal [Unknown]
  - Back pain [Recovered/Resolved]
  - Vertebral foraminal stenosis [Recovered/Resolved]
  - Spinal column stenosis [Not Recovered/Not Resolved]
  - Gout [Recovered/Resolved]
  - Joint swelling [Recovered/Resolved]
  - Joint swelling [Not Recovered/Not Resolved]
  - Rheumatoid arthritis [Not Recovered/Not Resolved]
  - Musculoskeletal stiffness [Not Recovered/Not Resolved]
